FAERS Safety Report 11836284 (Version 1)
Quarter: 2015Q4

REPORT INFORMATION
  Report Type: Report from Study
  Country: US (occurrence: US)
  Receive Date: 20151215
  Receipt Date: 20151215
  Transmission Date: 20160305
  Serious: Yes (Hospitalization, Other)
  Sender: FDA-Public Use
  Company Number: US-BAYER-2015-278113

PATIENT
  Age: 73 Year
  Sex: Female

DRUGS (23)
  1. SELENIUM [Concomitant]
     Active Substance: SELENIUM
     Dosage: 200 ?G, UNK
  2. BETASERON [Suspect]
     Active Substance: INTERFERON BETA-1B
     Indication: RELAPSING-REMITTING MULTIPLE SCLEROSIS
     Dosage: 0.25 MG, QOD
     Route: 058
  3. BETASERON [Suspect]
     Active Substance: INTERFERON BETA-1B
     Indication: RELAPSING-REMITTING MULTIPLE SCLEROSIS
     Dosage: 8 MIU, EVERY OTHER DAY
     Route: 058
     Dates: start: 201405, end: 20150610
  4. MAGNESIUM [Concomitant]
     Active Substance: MAGNESIUM
     Dosage: 500 MG, UNK
  5. AMPYRA [Concomitant]
     Active Substance: DALFAMPRIDINE
     Dosage: 10 MG, BID
     Route: 048
  6. VITAMIN E [Concomitant]
     Active Substance: .ALPHA.-TOCOPHEROL
     Dosage: 1000 U, UNK
  7. TRAZODONE HYDROCHLORIDE. [Concomitant]
     Active Substance: TRAZODONE HYDROCHLORIDE
     Indication: DEPRESSION
     Dosage: 50 MG, UNK
  8. VITAMIN D3 [Concomitant]
     Active Substance: CHOLECALCIFEROL
     Dosage: 1000 U, UNK
  9. AMPYRA [Suspect]
     Active Substance: DALFAMPRIDINE
  10. BETHANECHOL CHLORIDE. [Concomitant]
     Active Substance: BETHANECHOL CHLORIDE
     Dosage: 25 MG, UNK
  11. FOLIC ACID. [Concomitant]
     Active Substance: FOLIC ACID
     Dosage: 800 ?G, UNK
  12. BAYER LOW DOSE [Concomitant]
     Active Substance: ASPIRIN
  13. HYDROCHLOROTHIAZIDE. [Concomitant]
     Active Substance: HYDROCHLOROTHIAZIDE
     Dosage: 25 MG, UNK
  14. OXYBUTYNIN CHLORIDE. [Concomitant]
     Active Substance: OXYBUTYNIN CHLORIDE
     Dosage: 15 MG, UNK
  15. BACLOFEN. [Concomitant]
     Active Substance: BACLOFEN
     Indication: MUSCLE SPASTICITY
     Dosage: 10 MG, UNK
  16. HYDROCODONE/ACETAMINOPHEN [Concomitant]
     Active Substance: ACETAMINOPHEN\HYDROCODONE
     Dosage: UNK
  17. POTASSIUM CHLORIDE. [Concomitant]
     Active Substance: POTASSIUM CHLORIDE
     Dosage: 10 MEQ, UNK
  18. VITAMIN C [Concomitant]
     Active Substance: ASCORBIC ACID
     Dosage: 1000 MG, UNK
  19. FISH OIL [Concomitant]
     Active Substance: FISH OIL
  20. LIPITOR [Concomitant]
     Active Substance: ATORVASTATIN CALCIUM
     Dosage: 20 MG, UNK
  21. ROPINIROLE HYDROCHLORIDE. [Concomitant]
     Active Substance: ROPINIROLE HYDROCHLORIDE
     Dosage: 1 MG, UNK
  22. AMLODIPINE BESYLATE. [Concomitant]
     Active Substance: AMLODIPINE BESYLATE
  23. ZINC [Concomitant]
     Active Substance: ZINC\ZINC CHLORIDE

REACTIONS (34)
  - Cognitive disorder [None]
  - Muscle spasms [None]
  - Asthenia [Recovering/Resolving]
  - Visual impairment [Not Recovered/Not Resolved]
  - Balance disorder [None]
  - Balance disorder [None]
  - Gait disturbance [Not Recovered/Not Resolved]
  - Dizziness [None]
  - Arthralgia [Recovering/Resolving]
  - Incorrect drug administration duration [None]
  - Exercise tolerance decreased [None]
  - Fall [None]
  - Muscle spasms [Recovering/Resolving]
  - Depression [None]
  - Pelvic floor muscle weakness [Recovering/Resolving]
  - Multiple sclerosis relapse [Not Recovered/Not Resolved]
  - Electromyogram abnormal [Recovering/Resolving]
  - Injection site pruritus [None]
  - Weight decreased [None]
  - Fall [None]
  - Suicidal ideation [None]
  - Neurogenic bladder [Recovering/Resolving]
  - Asthenia [None]
  - Balance disorder [Not Recovered/Not Resolved]
  - Hypersomnia [Recovered/Resolved]
  - Spinal column stenosis [Recovering/Resolving]
  - Urinary incontinence [Recovering/Resolving]
  - Arthritis [None]
  - Back pain [None]
  - Injection site erythema [None]
  - Fatigue [None]
  - Cataract [None]
  - Muscle spasticity [None]
  - Pain in extremity [Recovering/Resolving]

NARRATIVE: CASE EVENT DATE: 201502
